FAERS Safety Report 21233031 (Version 1)
Quarter: 2022Q3

REPORT INFORMATION
  Report Type: Spontaneous
  Country: US (occurrence: US)
  Receive Date: 20220819
  Receipt Date: 20220819
  Transmission Date: 20221027
  Serious: Yes (Other)
  Sender: FDA-Public Use
  Company Number: US-NOVOPROD-947662

PATIENT
  Age: 73 Year
  Sex: Female

DRUGS (1)
  1. INSULIN ASPART [Suspect]
     Active Substance: INSULIN ASPART
     Indication: Type 2 diabetes mellitus
     Dosage: UNK (SLIDING SCALE)
     Route: 058
     Dates: start: 2017

REACTIONS (5)
  - Calcinosis [Not Recovered/Not Resolved]
  - Breast discharge [Not Recovered/Not Resolved]
  - Ear infection [Recovered/Resolved]
  - Injection site haemorrhage [Recovered/Resolved]
  - Blood glucose increased [Not Recovered/Not Resolved]

NARRATIVE: CASE EVENT DATE: 20220601
